FAERS Safety Report 9192057 (Version 1)
Quarter: 2013Q1

REPORT INFORMATION
  Report Type: Spontaneous
  Country: DE (occurrence: None)
  Receive Date: 20130325
  Receipt Date: 20130325
  Transmission Date: 20140127
  Serious: Yes (Other)
  Sender: FDA-Public Use
  Company Number: 2013-1161

PATIENT
  Age: 62 Year
  Sex: Male

DRUGS (8)
  1. DYSPORT (BOTULINUM TOXIN TYPE A) (BOTULINUM TOXIN TYPE A) [Suspect]
     Dosage: 500 UNITS  (500 UNITS, 1 IN 1
     Dates: start: 20130211, end: 20130211
  2. BISOPROLOL (BISOPROLOL) [Concomitant]
  3. REMERON (MIRTAZAPINE) [Concomitant]
  4. FUROSEMID (FUROSEMID) [Concomitant]
  5. POTASSIUM FIZZY (POTASSIUM) [Concomitant]
  6. CLEXANE (ENOXAPARIN SODIUM) [Suspect]
  7. KEPPRA (LEVETIRACETAM) [Concomitant]
  8. DUROGESIC (FENTANYL) [Concomitant]

REACTIONS (1)
  - Lymphoedema [None]
